FAERS Safety Report 9668838 (Version 2)
Quarter: 2013Q4

REPORT INFORMATION
  Report Type: Spontaneous
  Country: JP (occurrence: JP)
  Receive Date: 20131105
  Receipt Date: 20131112
  Transmission Date: 20140711
  Serious: Yes (Hospitalization, Other)
  Sender: FDA-Public Use
  Company Number: JP-UCBSA-101921

PATIENT
  Age: 3 Year
  Sex: Male

DRUGS (3)
  1. E KEPPRA [Suspect]
     Indication: CLONIC CONVULSION
     Dosage: DISCONTINUED THROUGH DOSE TAPERING
     Route: 048
  2. CLOBAZAM [Concomitant]
     Route: 048
  3. POTASSIUM BROMIDE [Concomitant]
     Dosage: 1.1G-DAILY DOSE
     Route: 048

REACTIONS (2)
  - Infantile spasms [Recovered/Resolved]
  - Atonic seizures [Recovered/Resolved]
